FAERS Safety Report 7676691-9 (Version None)
Quarter: 2011Q3

REPORT INFORMATION
  Report Type: 
  Country: None (occurrence: None)
  Receive Date: 20110805
  Receipt Date: 20110725
  Transmission Date: 20111222
  Serious: Yes (Hospitalization, Other)
  Sender: FDA-Public Use
  Company Number: JHP201100374

PATIENT
  Age: 65 Year
  Sex: Female
  Weight: 57 kg

DRUGS (7)
  1. EPHEDRINE (EPHEDRINE HYDROCHLORIDE) [Concomitant]
  2. HYDROXYZINE [Concomitant]
  3. EPINEPHRINE [Suspect]
     Indication: ANAPHYLACTIC REACTION
     Dosage: SEE IMAGE
     Route: 042
  4. SUFENTANIL CITRATE [Concomitant]
  5. PROPOFOL [Concomitant]
  6. VOLUVEN [Concomitant]
  7. SUCCINYLCHOLINE CHLORIDE [Concomitant]

REACTIONS (8)
  - VENTRICULAR EXTRASYSTOLES [None]
  - BLOOD PRESSURE IMMEASURABLE [None]
  - STRESS CARDIOMYOPATHY [None]
  - VENTRICULAR HYPOKINESIA [None]
  - ACUTE PULMONARY OEDEMA [None]
  - EJECTION FRACTION DECREASED [None]
  - NO THERAPEUTIC RESPONSE [None]
  - BRADYCARDIA [None]
